FAERS Safety Report 6407731-2 (Version None)
Quarter: 2009Q4

REPORT INFORMATION
  Report Type: 
  Country: None (occurrence: None)
  Receive Date: 20091020
  Receipt Date: 20091014
  Transmission Date: 20100525
  Serious: Yes (Other)
  Sender: FDA-Public Use
  Company Number: JP-AVENTIS-200912840JP

PATIENT

DRUGS (1)
  1. DOCETAXEL [Suspect]
     Route: 041

REACTIONS (1)
  - LUNG DISORDER [None]
